FAERS Safety Report 14441995 (Version 1)
Quarter: 2018Q1

REPORT INFORMATION
  Report Type: Spontaneous
  Country: US (occurrence: US)
  Receive Date: 20180125
  Receipt Date: 20180125
  Transmission Date: 20180509
  Serious: No
  Sender: FDA-Public Use
  Company Number: US-CELGENEUS-USA-20180106768

PATIENT
  Age: 61 Year
  Sex: Female

DRUGS (1)
  1. REVLIMID [Suspect]
     Active Substance: LENALIDOMIDE
     Indication: PLASMA CELL MYELOMA
     Dosage: 10 MILLIGRAM
     Route: 048
     Dates: start: 20171219, end: 20171224

REACTIONS (10)
  - Nausea [Unknown]
  - Vomiting [Unknown]
  - Cyanosis [Unknown]
  - Arthralgia [Unknown]
  - Fatigue [Unknown]
  - Constipation [Unknown]
  - Pruritus generalised [Unknown]
  - Rash [Unknown]
  - Ear swelling [Unknown]
  - Pyrexia [Unknown]

NARRATIVE: CASE EVENT DATE: 20171219
